FAERS Safety Report 17278779 (Version 4)
Quarter: 2021Q4

REPORT INFORMATION
  Report Type: Report from Study
  Country: DE (occurrence: DE)
  Receive Date: 20200116
  Receipt Date: 20211129
  Transmission Date: 20220303
  Serious: Yes (Hospitalization, Other)
  Sender: FDA-Public Use
  Company Number: DE-ABBVIE-20K-062-3231515-00

PATIENT
  Sex: Female
  Weight: 63 kg

DRUGS (2)
  1. SKYRIZI [Suspect]
     Active Substance: RISANKIZUMAB-RZAA
     Indication: Psoriasis
     Route: 058
     Dates: start: 20190712
  2. SKYRIZI [Suspect]
     Active Substance: RISANKIZUMAB-RZAA
     Route: 058
     Dates: start: 20190712

REACTIONS (8)
  - Breast mass [Unknown]
  - Follicular lymphoma [Recovered/Resolved]
  - Skin mass [Unknown]
  - Emphysema [Unknown]
  - Coronary artery stenosis [Unknown]
  - Aortic arteriosclerosis [Unknown]
  - Iliac artery disease [Unknown]
  - Coronary arterial stent insertion [Unknown]

NARRATIVE: CASE EVENT DATE: 20190101
